FAERS Safety Report 8653162 (Version 9)
Quarter: 2012Q4

REPORT INFORMATION
  Report Type: Report from Study
  Country: DE (occurrence: DE)
  Receive Date: 20120706
  Receipt Date: 20121129
  Transmission Date: 20130627
  Serious: Yes (Death, Hospitalization)
  Sender: FDA-Public Use
  Company Number: DE-ROCHE-1081957

PATIENT
  Age: 52 Year
  Sex: Male
  Weight: 105.2 kg

DRUGS (16)
  1. BEVACIZUMAB [Suspect]
     Indication: NON-SMALL CELL LUNG CANCER
     Dosage: last Dose administered 1575 mg on 05/June/2012
     Route: 042
     Dates: start: 20120424
  2. PACLITAXEL [Suspect]
     Indication: NON-SMALL CELL LUNG CANCER
     Dosage: last dose administered 432 mg on 05/June/2012
     Route: 042
     Dates: start: 20120424
  3. CARBOPLATIN [Suspect]
     Indication: NON-SMALL CELL LUNG CANCER
     Dosage: last dose administered 432 mg on 05/June/2012
     Route: 042
     Dates: start: 20120424
  4. DICLOFENAC [Concomitant]
     Indication: MUSCULOSKELETAL PAIN
     Route: 048
  5. OMEPRAZOLE [Concomitant]
     Indication: PROPHYLAXIS AGAINST GASTROINTESTINAL ULCER
     Route: 065
     Dates: start: 2008
  6. ONDANSETRON [Concomitant]
     Route: 042
     Dates: start: 20120424, end: 20120605
  7. DEXAMETHASONE [Concomitant]
     Route: 042
     Dates: start: 20120424, end: 20120605
  8. TAVEGIL [Concomitant]
     Route: 042
     Dates: start: 20120424, end: 20120605
  9. RANITIDINE [Concomitant]
     Route: 042
     Dates: start: 20120424, end: 20120605
  10. ACC LONG [Concomitant]
     Indication: CHRONIC OBSTRUCTIVE PULMONARY DISEASE
     Route: 048
  11. OXAZEPAM [Concomitant]
     Indication: INSOMNIA
     Route: 048
     Dates: start: 20120413
  12. ZOPICLON [Concomitant]
     Indication: INSOMNIA
     Route: 048
     Dates: start: 20120514
  13. IBUPROFEN [Concomitant]
     Indication: INFLAMMATION
     Route: 048
     Dates: start: 201206, end: 201206
  14. ERYTHROCYTE TRANSFUSIONS [Concomitant]
     Indication: ANAEMIA
     Dosage: dose: 9 units
     Route: 042
     Dates: start: 20120625, end: 20120625
  15. FRESH FROZEN PLASMA [Concomitant]
     Indication: ANAEMIA
     Dosage: dose: 1 unit
     Route: 042
     Dates: start: 20120625, end: 20120625
  16. MEGF0444A [Suspect]
     Indication: NON-SMALL CELL LUNG CANCER
     Dosage: last dose - 05/june/2012, 605 mg
     Route: 042
     Dates: start: 20120424

REACTIONS (1)
  - Gastric ulcer haemorrhage [Fatal]
